FAERS Safety Report 6292784-5 (Version None)
Quarter: 2009Q3

REPORT INFORMATION
  Report Type: 
  Country: None (occurrence: None)
  Receive Date: 20090731
  Receipt Date: 20090720
  Transmission Date: 20100115
  Serious: Yes (Hospitalization, Other)
  Sender: FDA-Public Use
  Company Number: DK-NOVOPROD-289618

PATIENT
  Sex: Female
  Weight: 70 kg

DRUGS (4)
  1. LEVEMIR [Suspect]
     Indication: DRUG USE FOR UNKNOWN INDICATION
     Dosage: 44 U AT GESTATIONAL WEEK 11
     Route: 058
  2. LEVEMIR [Suspect]
     Dosage: 55 U AT GESTATIONAL WEEK 34
     Route: 058
  3. NOVORAPID [Suspect]
     Indication: DRUG USE FOR UNKNOWN INDICATION
     Dosage: 19 U AT GESTATIONAL WEEK 11
     Route: 058
  4. NOVORAPID [Suspect]
     Dosage: 12 U AT GESTATIONAL WEEK 34
     Route: 058

REACTIONS (2)
  - DRUG EXPOSURE DURING PREGNANCY [None]
  - PRE-ECLAMPSIA [None]
